FAERS Safety Report 12190885 (Version 2)
Quarter: 2016Q1

REPORT INFORMATION
  Report Type: Spontaneous
  Country: IN (occurrence: IN)
  Receive Date: 20160318
  Receipt Date: 20160323
  Transmission Date: 20160526
  Serious: Yes (Other)
  Sender: FDA-Public Use
  Company Number: IN-PFIZER INC-2016151454

PATIENT
  Age: 22 Year
  Sex: Male
  Weight: 64 kg

DRUGS (1)
  1. CRIZALK [Suspect]
     Active Substance: CRIZOTINIB
     Indication: NON-HODGKIN^S LYMPHOMA
     Dosage: 250 MG, 2X/DAY
     Route: 048
     Dates: start: 20150319, end: 20160303

REACTIONS (11)
  - Dizziness [Unknown]
  - Visual impairment [Unknown]
  - Jaundice [Unknown]
  - Product use issue [Unknown]
  - Hypoacusis [Unknown]
  - Tuberculosis [Unknown]
  - Nausea [Unknown]
  - Vomiting [Unknown]
  - Chromaturia [Unknown]
  - Arthralgia [Unknown]
  - Tinnitus [Unknown]

NARRATIVE: CASE EVENT DATE: 20160225
